FAERS Safety Report 4979090-3 (Version None)
Quarter: 2006Q2

REPORT INFORMATION
  Report Type: 
  Country: None (occurrence: None)
  Receive Date: 20060421
  Receipt Date: 20060405
  Transmission Date: 20061013
  Serious: Yes (Other)
  Sender: FDA-Public Use
  Company Number: PHBS2006JP05232

PATIENT

DRUGS (2)
  1. DIOVAN [Suspect]
     Route: 048
  2. PROTON PUMP INHIBITORS [Suspect]

REACTIONS (1)
  - TOXIC EPIDERMAL NECROLYSIS [None]
